FAERS Safety Report 17930561 (Version 4)
Quarter: 2020Q3

REPORT INFORMATION
  Report Type: Report from Study
  Country: EG (occurrence: EG)
  Receive Date: 20200623
  Receipt Date: 20200912
  Transmission Date: 20201103
  Serious: Yes (Other)
  Sender: FDA-Public Use
  Company Number: NVSC2020EG172178

PATIENT
  Age: 71 Year
  Sex: Female

DRUGS (4)
  1. ENTRESTO [Suspect]
     Active Substance: SACUBITRIL\VALSARTAN
     Indication: CARDIAC FAILURE
     Dosage: 50 MG, BID
     Route: 048
  2. ENTRESTO [Suspect]
     Active Substance: SACUBITRIL\VALSARTAN
     Dosage: 100 MG, BID
     Route: 048
  3. CRESTOR [Concomitant]
     Active Substance: ROSUVASTATIN CALCIUM
     Indication: PRODUCT USED FOR UNKNOWN INDICATION
     Dosage: 20 MG, QD
     Route: 065
  4. ENTRESTO [Suspect]
     Active Substance: SACUBITRIL\VALSARTAN
     Dosage: 200 MG, BID
     Route: 048
     Dates: start: 202001

REACTIONS (12)
  - Angina pectoris [Not Recovered/Not Resolved]
  - Fall [Not Recovered/Not Resolved]
  - Blood creatinine increased [Not Recovered/Not Resolved]
  - Protein total increased [Not Recovered/Not Resolved]
  - Pleurisy [Recovering/Resolving]
  - Hypotension [Not Recovered/Not Resolved]
  - Hypotension [Recovered/Resolved]
  - Dizziness [Not Recovered/Not Resolved]
  - Hypoglycaemia [Unknown]
  - Tachycardia [Unknown]
  - Glycosylated haemoglobin increased [Unknown]
  - Heart rate increased [Recovered/Resolved]

NARRATIVE: CASE EVENT DATE: 20200101
